FAERS Safety Report 21692014 (Version 1)
Quarter: 2022Q4

REPORT INFORMATION
  Report Type: Spontaneous
  Country: US (occurrence: US)
  Receive Date: 20221207
  Receipt Date: 20221207
  Transmission Date: 20230113
  Serious: No
  Sender: FDA-Public Use
  Company Number: 8866841

PATIENT
  Age: 35 Year
  Sex: Female
  Weight: 56.689 kg

DRUGS (2)
  1. TWIRLA [Suspect]
     Active Substance: ETHINYL ESTRADIOL\LEVONORGESTREL
     Indication: Contraception
     Dosage: 120 MCG/DAY LEVONORGESTREL AND 30 MCG/DAY ETHINYL ESTRADIOL
     Route: 062
     Dates: start: 202208
  2. TWIRLA [Suspect]
     Active Substance: ETHINYL ESTRADIOL\LEVONORGESTREL
     Indication: Menstrual cycle management

REACTIONS (2)
  - Product adhesion issue [Recovered/Resolved]
  - Intermenstrual bleeding [Unknown]

NARRATIVE: CASE EVENT DATE: 20220907
